FAERS Safety Report 5545226-9 (Version None)
Quarter: 2007Q4

REPORT INFORMATION
  Report Type: 
  Country: None (occurrence: None)
  Receive Date: 20071123
  Receipt Date: 20061122
  Transmission Date: 20080405
  Serious: Yes (Death, Hospitalization)
  Sender: FDA-Public Use
  Company Number: US-JNJFOC-20060905775

PATIENT
  Age: 40 Year
  Sex: Male
  Weight: 91.173 kg

DRUGS (12)
  1. LEVAQUIN [Suspect]
     Indication: BRONCHITIS
     Dosage: 500 MG, IN 1 DAY, ORAL
     Route: 048
     Dates: start: 20060420, end: 20060420
  2. LEVAQUIN [Suspect]
     Indication: SINUSITIS
     Dosage: 500 MG, IN 1 DAY, ORAL
     Route: 048
     Dates: start: 20060420, end: 20060420
  3. LANTIS (INSULIN GLARGINE) UNSPECIFIED [Concomitant]
  4. ACTOS (PIOGLITAZONE) UNSPECIFIED [Concomitant]
  5. TRICLOR (TRICHLORMETHIAZIDE) UNSPECIFIED [Concomitant]
  6. LIPITOR (ATORVASTATIN) UNSPECIFIED [Concomitant]
  7. GLUCOTRAL (GLIPIZIDE) UNSPECIFIED [Concomitant]
  8. METFORMIN (METFORMIN) UNSPECIFIED [Concomitant]
  9. LISINOPRIL (LISINOPRIL) UNSPECIFIED [Concomitant]
  10. AUGMENTIN (CLAVULIN) UNSPECIFIED [Concomitant]
  11. FLONASE (FLUTICASONE PROPIONATE) UNKNOWN [Concomitant]
  12. MAXZIDE (DYAZIDE) UNSPECIFIED [Concomitant]

REACTIONS (1)
  - ANAPHYLACTIC REACTION [None]
